FAERS Safety Report 4479744-1 (Version None)
Quarter: 2004Q3

REPORT INFORMATION
  Report Type: 
  Country: None (occurrence: None)
  Receive Date: 20040923
  Receipt Date: 20040729
  Transmission Date: 20050211
  Serious: No
  Sender: FDA-Public Use
  Company Number: USA040361141

PATIENT
  Age: 79 Year
  Sex: Female
  Weight: 55 kg

DRUGS (8)
  1. FORTEO [Suspect]
     Indication: OSTEOPOROSIS
     Dosage: 20 UG DAY
     Dates: start: 20040102, end: 20040610
  2. ATACAND [Concomitant]
  3. NEXIUM [Concomitant]
  4. MULTIVITAMIN [Concomitant]
  5. SYNTHROID [Concomitant]
  6. MICROZIDE [Concomitant]
  7. HIGH BLOOD PRESSURE MEDICATION [Concomitant]
  8. LIPITOR [Concomitant]

REACTIONS (8)
  - ASTHENIA [None]
  - BLOOD PRESSURE INCREASED [None]
  - DIZZINESS [None]
  - HAIR COLOUR CHANGES [None]
  - INJECTION SITE HAEMORRHAGE [None]
  - NAUSEA [None]
  - PALPITATIONS [None]
  - WEIGHT DECREASED [None]
